FAERS Safety Report 20426276 (Version 1)
Quarter: 2022Q1

REPORT INFORMATION
  Report Type: Report from Study
  Country: US (occurrence: US)
  Receive Date: 20220204
  Receipt Date: 20220204
  Transmission Date: 20220423
  Serious: No
  Sender: FDA-Public Use
  Company Number: US-EXELIXIS-CABO-21042141

PATIENT
  Age: 76 Year
  Sex: Male
  Weight: 89.8 kg

DRUGS (9)
  1. CABOMETYX [Suspect]
     Active Substance: CABOZANTINIB S-MALATE
     Indication: Renal cancer
     Dosage: 40 MG, QD
     Route: 048
     Dates: start: 20210613, end: 20210619
  2. CABOMETYX [Suspect]
     Active Substance: CABOZANTINIB S-MALATE
     Dosage: UNK
     Route: 065
     Dates: start: 20210630
  3. BASAGLAR [Concomitant]
     Active Substance: INSULIN GLARGINE
  4. KWIKPEN [Concomitant]
  5. OPDIVO [Concomitant]
     Active Substance: NIVOLUMAB
  6. PRILOSEC [Concomitant]
     Active Substance: OMEPRAZOLE MAGNESIUM
  7. TYLENOL [Concomitant]
     Active Substance: ACETAMINOPHEN
  8. VEGETABLE LAXATIVE [Concomitant]
     Active Substance: SENNOSIDES A AND B
  9. XGEVA [Concomitant]
     Active Substance: DENOSUMAB

REACTIONS (4)
  - Skin exfoliation [Not Recovered/Not Resolved]
  - Erythema [Not Recovered/Not Resolved]
  - Headache [Recovering/Resolving]
  - Taste disorder [Unknown]

NARRATIVE: CASE EVENT DATE: 20210601
